FAERS Safety Report 22895192 (Version 3)
Quarter: 2025Q1

REPORT INFORMATION
  Report Type: Report from Study
  Country: US (occurrence: US)
  Receive Date: 20230901
  Receipt Date: 20250319
  Transmission Date: 20250409
  Serious: Yes (Hospitalization, Other)
  Sender: UCB
  Company Number: US-UCBSA-2023042090

PATIENT
  Age: 6 Year
  Sex: Male
  Weight: 21.3 kg

DRUGS (4)
  1. FINTEPLA [Suspect]
     Active Substance: FENFLURAMINE
     Indication: Lennox-Gastaut syndrome
     Dosage: 2 MILLILITER, 2X/DAY (BID)
     Route: 048
  2. FINTEPLA [Suspect]
     Active Substance: FENFLURAMINE
     Dosage: 3 MILLILITER, 2X/DAY (BID)
     Route: 048
     Dates: start: 20220714
  3. FINTEPLA [Suspect]
     Active Substance: FENFLURAMINE
     Dosage: 13.2 MILLIGRAM, ONCE DAILY (QD)
     Dates: start: 20220715
  4. FINTEPLA [Suspect]
     Active Substance: FENFLURAMINE
     Dosage: 3 MILLILITER, 2X/DAY (BID)
     Route: 048

REACTIONS (4)
  - Neuroprosthesis implantation [Recovered/Resolved]
  - Left ventricular dysfunction [Not Recovered/Not Resolved]
  - Echocardiogram abnormal [Not Recovered/Not Resolved]
  - Gastroenteritis viral [Recovered/Resolved]

NARRATIVE: CASE EVENT DATE: 20230803
